FAERS Safety Report 4335919-3 (Version None)
Quarter: 2004Q2

REPORT INFORMATION
  Report Type: 
  Country: None (occurrence: None)
  Receive Date: 20040406
  Receipt Date: 20040324
  Transmission Date: 20050107
  Serious: Yes (Life-Threatening, Hospitalization)
  Sender: FDA-Public Use
  Company Number: 04P-062-0252202-00

PATIENT
  Age: 70 Year
  Sex: Female
  Weight: 59 kg

DRUGS (5)
  1. HUMIRA [Suspect]
     Indication: RHEUMATOID ARTHRITIS
     Dosage: 40 MG, 1 IN 10 D, SUBCUTANEOUS
     Route: 058
     Dates: start: 20031127, end: 20040304
  2. GLUCOCORTICOIDS [Concomitant]
  3. ANALGESIC LIQ [Concomitant]
  4. TRAMADOL HCL [Concomitant]
  5. PREDNISOLONE [Concomitant]

REACTIONS (3)
  - EPISTAXIS [None]
  - RASH [None]
  - THROMBOCYTOPENIA [None]
